FAERS Safety Report 5345979-9 (Version None)
Quarter: 2007Q2

REPORT INFORMATION
  Report Type: 
  Country: None (occurrence: None)
  Receive Date: 20070430
  Receipt Date: 20070309
  Transmission Date: 20071010
  Serious: No
  Sender: FDA-Public Use
  Company Number: 261625

PATIENT
  Age: 45 Year
  Sex: Male
  Weight: 69.8 kg

DRUGS (4)
  1. LEVEMIR [Suspect]
     Indication: DIABETES MELLITUS
     Dosage: 16 IU, QD, SUBCUTANEOUS
     Route: 058
     Dates: start: 20060317
  2. HUMALOG /00030501/ (INSULIN) [Concomitant]
  3. VYTORIN [Concomitant]
  4. DIOVAN /01319601/(VALSARTAN) [Concomitant]

REACTIONS (2)
  - GLYCOSYLATED HAEMOGLOBIN INCREASED [None]
  - THERAPEUTIC RESPONSE DECREASED [None]
